FAERS Safety Report 9892880 (Version 4)
Quarter: 2015Q2

REPORT INFORMATION
  Report Type: Spontaneous
  Country: CN (occurrence: CN)
  Receive Date: 20140213
  Receipt Date: 20150527
  Transmission Date: 20150821
  Serious: Yes (Other)
  Sender: FDA-Public Use
  Company Number: CN-009507513-1402CHN004572

PATIENT
  Age: 90 Year
  Sex: Male

DRUGS (3)
  1. SI MO TANG KOU FU YE [Concomitant]
     Indication: ABDOMINAL DISCOMFORT
     Dosage: UNK
     Route: 048
  2. PROSCAR [Suspect]
     Active Substance: FINASTERIDE
     Indication: BENIGN PROSTATIC HYPERPLASIA
     Dosage: TOTAL DAILY DOSE 5 MG, QD
     Route: 048
     Dates: start: 201306
  3. TAMSULOSIN HYDROCHLORIDE. [Concomitant]
     Active Substance: TAMSULOSIN HYDROCHLORIDE
     Indication: BENIGN PROSTATIC HYPERPLASIA
     Dosage: ONE CAPSULE DAILY
     Route: 048
     Dates: start: 201406

REACTIONS (8)
  - Accident [Unknown]
  - Oliguria [Not Recovered/Not Resolved]
  - Pollakiuria [Not Recovered/Not Resolved]
  - Urinary hesitation [Not Recovered/Not Resolved]
  - Drug ineffective [Not Recovered/Not Resolved]
  - Lower limb fracture [Not Recovered/Not Resolved]
  - Movement disorder [Unknown]
  - Urinary hesitation [Not Recovered/Not Resolved]

NARRATIVE: CASE EVENT DATE: 2014
